FAERS Safety Report 11010673 (Version 1)
Quarter: 2015Q2

REPORT INFORMATION
  Report Type: Spontaneous
  Country: US (occurrence: None)
  Receive Date: 20150409
  Receipt Date: 20150409
  Transmission Date: 20150821
  Serious: No
  Sender: FDA-Public Use
  Company Number: None

PATIENT
  Age: 72 Year
  Sex: Female
  Weight: 54.43 kg

DRUGS (27)
  1. CLONODINE [Concomitant]
  2. LIDODERM [Concomitant]
     Active Substance: LIDOCAINE
  3. SUPER B-COMPLEX [Concomitant]
  4. ESTRODIAL PATCHES [Concomitant]
  5. VITAMIN E [Concomitant]
     Active Substance: .ALPHA.-TOCOPHEROL
  6. COQ10 [Concomitant]
     Active Substance: UBIDECARENONE
  7. POTASSIUM GLUCONATE [Concomitant]
     Active Substance: POTASSIUM GLUCONATE
  8. VITAMIN D-3 [Concomitant]
  9. SOY-HEALTHY WOMAN [Concomitant]
  10. MULTI VITAMINS [Concomitant]
  11. CHONDROITIN [Concomitant]
     Active Substance: CHONDROITIN
  12. BIOTIN [Concomitant]
     Active Substance: BIOTIN
  13. PREVACID [Concomitant]
     Active Substance: LANSOPRAZOLE
  14. MAGNESIUM [Concomitant]
     Active Substance: MAGNESIUM
  15. GLUCOSAMINE [Concomitant]
     Active Substance: GLUCOSAMINE
  16. LUTEIN [Concomitant]
     Active Substance: LUTEIN
  17. PREMARIN [Suspect]
     Active Substance: ESTROGENS, CONJUGATED
  18. VITAMINS C [Concomitant]
  19. FOSAMAX [Concomitant]
     Active Substance: ALENDRONATE SODIUM
  20. CALCIUM [Concomitant]
     Active Substance: CALCIUM
  21. BLACK COHOSH [Concomitant]
     Active Substance: BLACK COHOSH
  22. VAGIFEN [Concomitant]
  23. IBUPROFEN. [Concomitant]
     Active Substance: IBUPROFEN
  24. L-LYSINE [Concomitant]
     Active Substance: LYSINE
  25. QUININE SULFATE. [Concomitant]
     Active Substance: QUININE SULFATE
  26. ARMOUR A THYROID [Concomitant]
  27. NATURAL MAGNESIUM [Concomitant]

REACTIONS (11)
  - Vaginal infection [None]
  - Muscle spasms [None]
  - Hypersomnia [None]
  - Functional gastrointestinal disorder [None]
  - Vaginal disorder [None]
  - Abdominal pain upper [None]
  - Inflammation [None]
  - Mass [None]
  - Constipation [None]
  - Pain [None]
  - Feeling abnormal [None]

NARRATIVE: CASE EVENT DATE: 20150215
